FAERS Safety Report 13427159 (Version 4)
Quarter: 2017Q2

REPORT INFORMATION
  Report Type: Report from Study
  Country: None (occurrence: GR)
  Receive Date: 20170411
  Receipt Date: 20170622
  Transmission Date: 20170830
  Serious: Yes (Hospitalization)
  Sender: FDA-Public Use
  Company Number: GR-ABBVIE-17P-066-1937284-00

PATIENT
  Age: 88 Year
  Sex: Male
  Weight: 75 kg

DRUGS (4)
  1. DUODOPA [Suspect]
     Active Substance: CARBIDOPA\LEVODOPA
     Indication: PARKINSON^S DISEASE
     Dosage: MORNING DOSE: 6.0ML; CONTINUOUS RATE: 1.9ML/H; EXTRA DOSE: 1.0ML
     Route: 050
     Dates: start: 20160607
  2. DUODOPA [Suspect]
     Active Substance: CARBIDOPA\LEVODOPA
     Dosage: MORNING DOSE: 5ML; CONTINUOUS RATE:0.8ML/H; EXTRA DOSE:1.0ML
     Route: 050
     Dates: start: 20170405, end: 20170615
  3. INNOHEP [Concomitant]
     Active Substance: TINZAPARIN SODIUM
     Indication: PRODUCT USED FOR UNKNOWN INDICATION
     Route: 058
     Dates: start: 20170401
  4. DUODOPA [Suspect]
     Active Substance: CARBIDOPA\LEVODOPA
     Dosage: MORNING DOSE: 5.0ML; CONTINUOUS RATE: 0.6ML/H; EXTRA DOSE:?1.0ML (1-2 TIMES PER DAY)
     Route: 050
     Dates: start: 20170615

REACTIONS (14)
  - Speech disorder [Not Recovered/Not Resolved]
  - Hallucination [Recovered/Resolved]
  - Hallucination [Not Recovered/Not Resolved]
  - Nightmare [Not Recovered/Not Resolved]
  - Disorientation [Not Recovered/Not Resolved]
  - Joint dislocation [Recovered/Resolved]
  - Tremor [Not Recovered/Not Resolved]
  - Joint dislocation [Recovering/Resolving]
  - Weight decreased [Not Recovered/Not Resolved]
  - Urinary tract infection [Recovering/Resolving]
  - Agitation [Not Recovered/Not Resolved]
  - Hyperkinesia [Unknown]
  - Joint dislocation [Recovered/Resolved]
  - Hyperkinesia [Not Recovered/Not Resolved]

NARRATIVE: CASE EVENT DATE: 20170317
